FAERS Safety Report 4854750-3 (Version None)
Quarter: 2005Q4

REPORT INFORMATION
  Report Type: 
  Country: None (occurrence: None)
  Receive Date: 20051215
  Receipt Date: 20051206
  Transmission Date: 20060501
  Serious: Yes (Hospitalization)
  Sender: FDA-Public Use
  Company Number: FR-GLAXOSMITHKLINE-B0392499A

PATIENT
  Age: 47 Year
  Sex: Female

DRUGS (2)
  1. AUGMENTIN [Suspect]
     Indication: SINUSITIS
     Dosage: 2TAB PER DAY
     Route: 048
     Dates: start: 20051022, end: 20051029
  2. TAVANIC [Suspect]
     Indication: SINUSITIS
     Dosage: 1TAB PER DAY
     Route: 048
     Dates: start: 20051030, end: 20051102

REACTIONS (4)
  - APHTHOUS STOMATITIS [None]
  - BURNING SENSATION MUCOSAL [None]
  - ORAL MUCOSAL ERUPTION [None]
  - PARAESTHESIA ORAL [None]
